FAERS Safety Report 14235365 (Version 1)
Quarter: 2017Q4

REPORT INFORMATION
  Report Type: Report from Study
  Country: GB (occurrence: GB)
  Receive Date: 20171129
  Receipt Date: 20171129
  Transmission Date: 20180321
  Serious: Yes (Life-Threatening)
  Sender: FDA-Public Use
  Company Number: GB-ROCHE-1352612

PATIENT
  Age: 74 Year
  Sex: Female
  Weight: 91.2 kg

DRUGS (4)
  1. RITUXIMAB. [Suspect]
     Active Substance: RITUXIMAB
     Indication: B-CELL LYMPHOMA
     Route: 042
     Dates: start: 20100415, end: 20100618
  2. CYCLOPHOSPHAMIDE. [Suspect]
     Active Substance: CYCLOPHOSPHAMIDE
     Indication: LYMPHOMA
     Route: 042
     Dates: start: 20100415, end: 20100618
  3. RITUXIMAB. [Suspect]
     Active Substance: RITUXIMAB
     Dosage: 4 WEEKLY, 8 WEEKLY
     Route: 042
     Dates: start: 20100810, end: 20121009
  4. FLUDARABINE [Suspect]
     Active Substance: FLUDARABINE PHOSPHATE
     Indication: LYMPHOMA
     Route: 042
     Dates: start: 20100415, end: 20100618

REACTIONS (1)
  - Myelodysplastic syndrome [Recovered/Resolved with Sequelae]

NARRATIVE: CASE EVENT DATE: 20121204
